FAERS Safety Report 8168009-2 (Version None)
Quarter: 2012Q1

REPORT INFORMATION
  Report Type: 
  Country: None (occurrence: None)
  Receive Date: 20120222
  Receipt Date: 20120210
  Transmission Date: 20120608
  Serious: Yes (Other)
  Sender: FDA-Public Use
  Company Number: 2012P1004141

PATIENT
  Sex: Female

DRUGS (4)
  1. DURAMORPH PF [Suspect]
     Indication: CAESAREAN SECTION
     Dosage: 0.3 XG;X1;INTH
     Route: 037
     Dates: start: 20120204, end: 20120204
  2. BUPIVACAINE HCL [Concomitant]
  3. MULTI-VITAMINS [Concomitant]
  4. FENTANYL CITRATE [Concomitant]

REACTIONS (2)
  - MATERNAL EXPOSURE DURING PREGNANCY [None]
  - HYPOTHERMIA [None]
